FAERS Safety Report 16341867 (Version 2)
Quarter: 2019Q3

REPORT INFORMATION
  Report Type: Report from Study
  Country: DE (occurrence: DE)
  Receive Date: 20190522
  Receipt Date: 20190704
  Transmission Date: 20191004
  Serious: Yes (Death, Hospitalization, Other)
  Sender: FDA-Public Use
  Company Number: DE-BRISTOL-MYERS SQUIBB COMPANY-BMS-2019-045053

PATIENT
  Age: 94 Year
  Sex: Female

DRUGS (1)
  1. APIXABAN [Suspect]
     Active Substance: APIXABAN
     Indication: CEREBROVASCULAR ACCIDENT PROPHYLAXIS
     Dosage: UNK, DAILY
     Route: 065
     Dates: end: 20190408

REACTIONS (6)
  - Cerebral haemorrhage [Fatal]
  - Fall [Unknown]
  - Extradural haematoma [Unknown]
  - Skin abrasion [Unknown]
  - Periorbital haematoma [Unknown]
  - Skin laceration [Unknown]

NARRATIVE: CASE EVENT DATE: 20190408
